FAERS Safety Report 10872203 (Version 1)
Quarter: 2015Q1

REPORT INFORMATION
  Report Type: Spontaneous
  Country: US (occurrence: None)
  Receive Date: 20150223
  Receipt Date: 20150223
  Transmission Date: 20150721
  Serious: Yes (Life-Threatening, Hospitalization)
  Sender: FDA-Public Use
  Company Number: None

PATIENT
  Age: 49 Year
  Sex: Female
  Weight: 50.8 kg

DRUGS (1)
  1. ROCEPHIN [Suspect]
     Active Substance: CEFTRIAXONE SODIUM

REACTIONS (6)
  - Paraesthesia oral [None]
  - Disorientation [None]
  - Vision blurred [None]
  - Paraesthesia [None]
  - Dehydration [None]
  - Consciousness fluctuating [None]

NARRATIVE: CASE EVENT DATE: 20050809
